FAERS Safety Report 7086685-2 (Version None)
Quarter: 2010Q4

REPORT INFORMATION
  Report Type: 
  Country: None (occurrence: None)
  Receive Date: 20101105
  Receipt Date: 20101025
  Transmission Date: 20110411
  Serious: Yes (Other)
  Sender: FDA-Public Use
  Company Number: US-ELI_LILLY_AND_COMPANY-US201011001160

PATIENT

DRUGS (1)
  1. GEMZAR [Suspect]
     Indication: PANCREATIC CARCINOMA
     Dosage: 1250 MG/M2, ON DAYS 1 AND 8 OF A 21 DAY CYCLE FOR 4 CYCLES
     Route: 042

REACTIONS (1)
  - HAEMATOTOXICITY [None]
